FAERS Safety Report 17746449 (Version 1)
Quarter: 2020Q2

REPORT INFORMATION
  Report Type: Spontaneous
  Country: US (occurrence: US)
  Receive Date: 20200505
  Receipt Date: 20200505
  Transmission Date: 20200714
  Serious: Yes (Death)
  Sender: FDA-Public Use
  Company Number: None

PATIENT
  Age: 69 Year
  Sex: Male
  Weight: 70.31 kg

DRUGS (16)
  1. CEFTRIAXONE. [Concomitant]
     Active Substance: CEFTRIAXONE
     Dates: start: 20200424
  2. TOCILIZUMAB. [Concomitant]
     Active Substance: TOCILIZUMAB
     Dates: start: 20200426, end: 20200426
  3. HYDROXYCHLOROQUINE SULFATE TABLETS [Suspect]
     Active Substance: HYDROXYCHLOROQUINE SULFATE
     Indication: COVID-19
     Route: 048
     Dates: start: 20200425, end: 20200428
  4. BENAZEPRIL [Concomitant]
     Active Substance: BENAZEPRIL HYDROCHLORIDE
     Dates: start: 20200425
  5. NEUTRAPHOS [Concomitant]
     Dates: start: 20200427
  6. AZITHROMYCIN ANHYDROUS. [Concomitant]
     Active Substance: AZITHROMYCIN ANHYDROUS
     Dates: start: 20200424
  7. AMPICILLIN [Concomitant]
     Active Substance: AMPICILLIN
     Dates: start: 20200426, end: 20200426
  8. ASCORBIC ACID. [Concomitant]
     Active Substance: ASCORBIC ACID
     Dates: start: 20200424
  9. DOXYCYCLINE. [Concomitant]
     Active Substance: DOXYCYCLINE
     Dates: start: 20200425
  10. ALBUTEROL INHALER [Concomitant]
     Active Substance: ALBUTEROL
     Dates: start: 20200424
  11. ACETAMINOPHEN. [Concomitant]
     Active Substance: ACETAMINOPHEN
     Dates: start: 20200424
  12. HYDROCHLOROTHIAZIDE. [Concomitant]
     Active Substance: HYDROCHLOROTHIAZIDE
     Dates: start: 20200425
  13. NS 1000 ML [Concomitant]
     Dates: start: 20200424
  14. REGULAR INSULIN [Concomitant]
     Active Substance: INSULIN NOS
  15. ENOXAPARIN [Concomitant]
     Active Substance: ENOXAPARIN
     Dates: start: 20200426
  16. ZINC SULFATE. [Concomitant]
     Active Substance: ZINC SULFATE
     Dates: start: 20200424

REACTIONS (13)
  - Asthenia [None]
  - Pneumonia [None]
  - Hypertension [None]
  - Aspartate aminotransferase increased [None]
  - Blood alkaline phosphatase increased [None]
  - Hypoxia [None]
  - Blood fibrinogen increased [None]
  - Type 2 diabetes mellitus [None]
  - Blood lactate dehydrogenase increased [None]
  - Serum ferritin increased [None]
  - Respiratory failure [None]
  - Lymphopenia [None]
  - Blood potassium decreased [None]

NARRATIVE: CASE EVENT DATE: 20200428
